FAERS Safety Report 5123167-9 (Version None)
Quarter: 2006Q4

REPORT INFORMATION
  Report Type: 
  Country: None (occurrence: None)
  Receive Date: 20061009
  Receipt Date: 20061003
  Transmission Date: 20070319
  Serious: Yes (Life-Threatening)
  Sender: FDA-Public Use
  Company Number: FR-MERCK-0610FRA00012

PATIENT
  Age: 55 Year
  Sex: Female
  Weight: 50 kg

DRUGS (6)
  1. EMEND [Suspect]
     Indication: PROPHYLAXIS OF NAUSEA AND VOMITING
     Route: 048
     Dates: start: 20060802, end: 20060802
  2. MANNITOL [Suspect]
     Route: 042
     Dates: start: 20060802, end: 20060802
  3. CISPLATIN [Suspect]
     Indication: BILIARY NEOPLASM
     Route: 042
     Dates: start: 20060802, end: 20060802
  4. GEMCITABINE [Suspect]
     Indication: BILIARY NEOPLASM
     Route: 042
     Dates: start: 20060802, end: 20060802
  5. METHYLPREDNISOLONE SODIUM SUCCINATE [Suspect]
     Indication: PROPHYLAXIS OF NAUSEA AND VOMITING
     Route: 042
     Dates: start: 20060802, end: 20060802
  6. GRANISETRON HCL [Suspect]
     Indication: PROPHYLAXIS OF NAUSEA AND VOMITING
     Route: 042
     Dates: start: 20060802, end: 20060802

REACTIONS (1)
  - ACUTE PULMONARY OEDEMA [None]
